FAERS Safety Report 14066521 (Version 2)
Quarter: 2017Q4

REPORT INFORMATION
  Report Type: Spontaneous
  Country: JP (occurrence: JP)
  Receive Date: 20171009
  Receipt Date: 20171024
  Transmission Date: 20180321
  Serious: Yes (Hospitalization, Other)
  Sender: FDA-Public Use
  Company Number: PHJP2016JP022931

PATIENT
  Age: 41 Year
  Sex: Male

DRUGS (8)
  1. ZYLORIC [Concomitant]
     Active Substance: ALLOPURINOL
     Indication: HYPERURICAEMIA
     Dosage: 50 MG, QD
     Route: 048
     Dates: start: 20140801, end: 20150515
  2. NEORAL [Suspect]
     Active Substance: CYCLOSPORINE
     Indication: PSORIASIS
     Dosage: UNK
     Route: 048
  3. NEORAL [Suspect]
     Active Substance: CYCLOSPORINE
     Dosage: 100 MG, QD
     Route: 048
     Dates: start: 20141003
  4. NEORAL [Suspect]
     Active Substance: CYCLOSPORINE
     Dosage: 150 MG, QD
     Route: 048
     Dates: start: 20140214
  5. BEZATOL [Suspect]
     Active Substance: BEZAFIBRATE
     Indication: DYSLIPIDAEMIA
     Dosage: 400 MG, QD
     Route: 048
     Dates: start: 20140509, end: 20141003
  6. BEZATOL [Suspect]
     Active Substance: BEZAFIBRATE
     Dosage: 400 MG, QD
     Route: 048
     Dates: start: 20161111
  7. NEORAL [Suspect]
     Active Substance: CYCLOSPORINE
     Dosage: 150/100 MG, ALTERNATE ADMINISTRATION
     Route: 048
     Dates: start: 20141017, end: 20150717
  8. HUMIRA [Suspect]
     Active Substance: ADALIMUMAB
     Indication: PSORIASIS
     Dosage: UNK
     Route: 065
     Dates: start: 20120824

REACTIONS (2)
  - Renal impairment [Recovering/Resolving]
  - Demyelination [Recovering/Resolving]

NARRATIVE: CASE EVENT DATE: 201308
